FAERS Safety Report 11124076 (Version 2)
Quarter: 2015Q2

REPORT INFORMATION
  Report Type: Spontaneous
  Country: IL (occurrence: IL)
  Receive Date: 20150520
  Receipt Date: 20150526
  Transmission Date: 20150821
  Serious: Yes (Hospitalization)
  Sender: FDA-Public Use
  Company Number: IL-ABBVIE-15K-082-1390604-00

PATIENT
  Age: 13 Year
  Sex: Male
  Weight: 30 kg

DRUGS (8)
  1. VITAMINS NOS [Concomitant]
     Active Substance: VITAMINS
     Indication: PRODUCT USED FOR UNKNOWN INDICATION
  2. IRON [Concomitant]
     Active Substance: IRON
     Indication: PRODUCT USED FOR UNKNOWN INDICATION
  3. HUMIRA [Suspect]
     Active Substance: ADALIMUMAB
     Indication: INFLAMMATORY BOWEL DISEASE
     Route: 065
  4. HUMIRA [Suspect]
     Active Substance: ADALIMUMAB
     Dosage: LOADING DOSE ONLY ONCE ONE MONTH AGO
     Route: 065
     Dates: start: 201504, end: 201504
  5. HUMIRA [Suspect]
     Active Substance: ADALIMUMAB
     Route: 065
     Dates: end: 20150506
  6. GROWTH HORMON [Concomitant]
     Indication: GLYCOGEN STORAGE DISEASE TYPE I
  7. G-CSF [Concomitant]
     Active Substance: GRANULOCYTE COLONY-STIMULATING FACTOR NOS
     Indication: NEUTROPENIA
     Dosage: ONCE IN A WHILE ACCORDING TO BLOOD COUNT
  8. BIOTROPIN [Concomitant]
     Indication: PRODUCT USED FOR UNKNOWN INDICATION

REACTIONS (10)
  - Tremor [Recovering/Resolving]
  - Hypokinesia [Recovering/Resolving]
  - Intestinal stenosis [Recovering/Resolving]
  - Diarrhoea [Recovering/Resolving]
  - Confusional state [Recovering/Resolving]
  - Inflammatory bowel disease [Recovering/Resolving]
  - Cerebellar syndrome [Recovering/Resolving]
  - Dyskinesia [Recovering/Resolving]
  - Intestinal mucosal hypertrophy [Recovering/Resolving]
  - Oral fungal infection [Recovering/Resolving]
